FAERS Safety Report 8850623 (Version 1)
Quarter: 2012Q4

REPORT INFORMATION
  Report Type: 
  Country: US (occurrence: US)
  Receive Date: 20121019
  Receipt Date: 20121019
  Transmission Date: 20130627
  Serious: No
  Sender: FDA-Public Use
  Company Number: US-009507513-1210USA007209

PATIENT
  Age: 58 None
  Sex: Male

DRUGS (2)
  1. JANUMET [Suspect]
     Dosage: 500/50 mg, bid
     Route: 048
     Dates: start: 20121010
  2. ACTOS [Concomitant]

REACTIONS (2)
  - Tinnitus [Not Recovered/Not Resolved]
  - Drug ineffective [Not Recovered/Not Resolved]
